FAERS Safety Report 10056564 (Version 1)
Quarter: 2014Q2

REPORT INFORMATION
  Report Type: Spontaneous
  Country: US (occurrence: US)
  Receive Date: 20140403
  Receipt Date: 20140403
  Transmission Date: 20141212
  Serious: No
  Sender: FDA-Public Use
  Company Number: US-PFIZER INC-2014093253

PATIENT
  Sex: 0

DRUGS (2)
  1. VENLAFAXINE HCL [Suspect]
     Dosage: 150 MG, UNK
  2. VENLAFAXINE HCL [Suspect]
     Dosage: 75 MG, UNK

REACTIONS (1)
  - Dizziness [Unknown]
